FAERS Safety Report 13840093 (Version 1)
Quarter: 2017Q3

REPORT INFORMATION
  Report Type: Spontaneous
  Country: JP (occurrence: US)
  Receive Date: 20170807
  Receipt Date: 20170807
  Transmission Date: 20171127
  Serious: Yes (Hospitalization, Other)
  Sender: FDA-Public Use
  Company Number: JP-AMNEAL PHARMACEUTICALS-2017AMN00770

PATIENT
  Age: 3 Year
  Sex: Female

DRUGS (4)
  1. PREDNISOLONE. [Concomitant]
     Active Substance: PREDNISOLONE
     Indication: HENOCH-SCHONLEIN PURPURA NEPHRITIS
     Dosage: UNK
     Route: 065
  2. DIPYRIDAMOLE. [Concomitant]
     Active Substance: DIPYRIDAMOLE
     Indication: HENOCH-SCHONLEIN PURPURA NEPHRITIS
     Dosage: UNK
     Route: 065
  3. MIZORIBINE [Concomitant]
     Active Substance: MIZORIBINE
     Indication: HENOCH-SCHONLEIN PURPURA NEPHRITIS
     Dosage: UNK
     Route: 065
  4. WARFARIN SODIUM. [Suspect]
     Active Substance: WARFARIN SODIUM
     Indication: HENOCH-SCHONLEIN PURPURA NEPHRITIS
     Dosage: UNK
     Route: 065

REACTIONS (5)
  - Blister [Recovered/Resolved]
  - Erythema [Recovered/Resolved]
  - Pyrexia [Recovered/Resolved]
  - Toxic epidermal necrolysis [Recovered/Resolved]
  - Skin abrasion [Recovered/Resolved]
